FAERS Safety Report 9661303 (Version 2)
Quarter: 2013Q4

REPORT INFORMATION
  Report Type: Report from Study
  Country: JP (occurrence: JP)
  Receive Date: 20131031
  Receipt Date: 20131031
  Transmission Date: 20140711
  Serious: Yes (Disabling, Other)
  Sender: FDA-Public Use
  Company Number: JP-TAKEDA-TPA2013A07813

PATIENT
  Age: 88 Year
  Sex: Male
  Weight: 42.5 kg

DRUGS (10)
  1. FEBURIC [Suspect]
     Indication: HYPERURICAEMIA
     Route: 048
     Dates: start: 20120728, end: 20121203
  2. EVIPROSTAT [Concomitant]
     Indication: BENIGN PROSTATIC HYPERPLASIA
     Route: 048
     Dates: start: 20120523, end: 20121203
  3. MAGMITT [Concomitant]
     Indication: CONSTIPATION
     Dosage: 750 MG, QD
     Route: 048
     Dates: start: 20120528, end: 20121108
  4. UNISIA [Concomitant]
     Indication: HYPERTENSION
     Dosage: 1 DF, QD
     Route: 048
     Dates: start: 20120719, end: 20120801
  5. FUROSEMIDE [Concomitant]
     Indication: RENAL FAILURE CHRONIC
     Dosage: 40 MG, QD
     Route: 048
     Dates: start: 20120514, end: 20121118
  6. FUROSEMIDE [Concomitant]
     Indication: CARDIAC FAILURE
  7. PROMAC [Concomitant]
     Indication: GASTRIC ULCER
     Dosage: 150 MG, QD
     Route: 048
     Dates: start: 20120514, end: 20121128
  8. PURSENNID [Concomitant]
     Indication: CONSTIPATION
     Dosage: 24 MG, QD
     Route: 048
     Dates: start: 20120528
  9. GASPORT [Concomitant]
     Indication: GASTRIC ULCER
     Dosage: 10 MG, QD
     Route: 048
     Dates: start: 20121129
  10. ALLEGRA                            /01314201/ [Concomitant]
     Indication: PRURITUS
     Dosage: 60 MG, QD
     Route: 048
     Dates: start: 20121129

REACTIONS (1)
  - Renal failure [Not Recovered/Not Resolved]
